FAERS Safety Report 18749729 (Version 1)
Quarter: 2021Q1

REPORT INFORMATION
  Report Type: Report from Study
  Country: CA (occurrence: CA)
  Receive Date: 20210117
  Receipt Date: 20210117
  Transmission Date: 20210419
  Serious: Yes (Other)
  Sender: FDA-Public Use
  Company Number: NVSC2021CA004593

PATIENT
  Age: 23 Year
  Sex: Female
  Weight: 76.4 kg

DRUGS (6)
  1. TRAMETINIB [Suspect]
     Active Substance: TRAMETINIB
     Dosage: 2 MG
     Route: 048
     Dates: start: 20201124, end: 20201208
  2. HALOPERIDOL. [Concomitant]
     Active Substance: HALOPERIDOL
     Indication: PRODUCT USED FOR UNKNOWN INDICATION
     Dosage: UNK
     Route: 065
  3. TRAMETINIB [Suspect]
     Active Substance: TRAMETINIB
     Indication: GLIOMA
     Dosage: 2 MG, DAILY
     Route: 048
     Dates: start: 20201104
  4. HYDROMORPHONE [Suspect]
     Active Substance: HYDROMORPHONE
     Indication: PRODUCT USED FOR UNKNOWN INDICATION
     Dosage: UNK
     Route: 065
  5. DEXAMETHASONE. [Suspect]
     Active Substance: DEXAMETHASONE
     Indication: PRODUCT USED FOR UNKNOWN INDICATION
     Dosage: 4 MG, QD
     Route: 048
     Dates: start: 20201015
  6. PREGABALIN. [Concomitant]
     Active Substance: PREGABALIN
     Indication: PRODUCT USED FOR UNKNOWN INDICATION
     Dosage: 50 MG, BID
     Route: 065
     Dates: start: 20201101

REACTIONS (7)
  - Brain stem glioma [Unknown]
  - General physical health deterioration [Unknown]
  - Hepatotoxicity [Recovering/Resolving]
  - Somnolence [Not Recovered/Not Resolved]
  - Malignant neoplasm progression [Unknown]
  - Dyspnoea [Unknown]
  - Serum ferritin increased [Recovering/Resolving]

NARRATIVE: CASE EVENT DATE: 20201026
